FAERS Safety Report 4474060-6 (Version None)
Quarter: 2004Q4

REPORT INFORMATION
  Report Type: 
  Country: None (occurrence: None)
  Receive Date: 20041008
  Receipt Date: 20040916
  Transmission Date: 20050328
  Serious: Yes (Hospitalization)
  Sender: FDA-Public Use
  Company Number: US_0409105498

PATIENT
  Age: 1 Day
  Sex: Male

DRUGS (10)
  1. HUMALOG [Suspect]
  2. HUMULIN N [Suspect]
  3. ILETIN [Suspect]
  4. CELLCEPT [Concomitant]
  5. PROGRAF [Concomitant]
  6. PLAVIX [Concomitant]
  7. TOPROL-XL [Concomitant]
  8. ASPIRIN [Concomitant]
  9. SINEMET [Concomitant]
  10. INSULIN GLARGINE [Concomitant]

REACTIONS (6)
  - DRUG EXPOSURE DURING PREGNANCY [None]
  - PNEUMONIA [None]
  - PREMATURE BABY [None]
  - PULMONARY HYPOPLASIA [None]
  - RESPIRATORY DISORDER [None]
  - TREATMENT NONCOMPLIANCE [None]
